FAERS Safety Report 8446671-4 (Version None)
Quarter: 2012Q2

REPORT INFORMATION
  Report Type: 
  Country: None (occurrence: None)
  Receive Date: 20120619
  Receipt Date: 20120612
  Transmission Date: 20120825
  Serious: No
  Sender: FDA-Public Use
  Company Number: US-BIOGENIDEC-2012BI020240

PATIENT
  Age: 35 Year
  Sex: Female

DRUGS (2)
  1. TYSABRI [Suspect]
     Indication: MULTIPLE SCLEROSIS
     Route: 042
     Dates: start: 20120522
  2. OXYCODONE HCL [Concomitant]
     Indication: PAIN

REACTIONS (5)
  - HAND FRACTURE [None]
  - LACERATION [None]
  - PAIN IN EXTREMITY [None]
  - CONTUSION [None]
  - ROAD TRAFFIC ACCIDENT [None]
